FAERS Safety Report 8966213 (Version 1)
Quarter: 2012Q4

REPORT INFORMATION
  Report Type: 
  Country: FR (occurrence: FR)
  Receive Date: 20121214
  Receipt Date: 20121214
  Transmission Date: 20130627
  Serious: Yes (Death)
  Sender: FDA-Public Use
  Company Number: FR-EISAI INC-E7389-03359-SPO-FR

PATIENT
  Age: 61 Year
  Sex: Female

DRUGS (2)
  1. HALAVEN [Suspect]
     Indication: METASTATIC BREAST CANCER
     Route: 041
     Dates: start: 201210, end: 201210
  2. XELODA [Suspect]
     Indication: METASTATIC BREAST CANCER
     Dosage: UNKNOWN
     Dates: start: 201209

REACTIONS (2)
  - Multi-organ failure [Fatal]
  - Febrile bone marrow aplasia [Fatal]
